FAERS Safety Report 9513214 (Version 1)
Quarter: 2013Q3

REPORT INFORMATION
  Report Type: Spontaneous
  Country: US (occurrence: US)
  Receive Date: 20130910
  Receipt Date: 20130910
  Transmission Date: 20140515
  Serious: No
  Sender: FDA-Public Use
  Company Number: US-PFIZER INC-2013258638

PATIENT
  Age: 87 Year
  Sex: Female
  Weight: 58.96 kg

DRUGS (3)
  1. ADVIL [Suspect]
     Indication: ARTHRALGIA
     Dosage: UNK, 1X/DAY (AT NIGHT)
  2. LEVOTHYROXINE SODIUM [Suspect]
     Dosage: 25 MG, 1X/DAY
  3. DETROL LA [Suspect]
     Indication: HYPERTONIC BLADDER
     Dosage: UNK, 1X/DAY (IN MORNING)

REACTIONS (4)
  - Arthralgia [Not Recovered/Not Resolved]
  - Pain in extremity [Not Recovered/Not Resolved]
  - Balance disorder [Not Recovered/Not Resolved]
  - Drug ineffective [Unknown]
